FAERS Safety Report 10087866 (Version 1)
Quarter: 2014Q2

REPORT INFORMATION
  Report Type: Spontaneous
  Country: US (occurrence: US)
  Receive Date: 20140418
  Receipt Date: 20140418
  Transmission Date: 20141212
  Serious: No
  Sender: FDA-Public Use
  Company Number: US-PURDUE-USA-2014-0111341

PATIENT
  Sex: Male

DRUGS (1)
  1. OXYCODONE HYDROCHLORIDE (SIMILAR TO NDA 22-272) [Suspect]
     Indication: PAIN
     Dosage: 10 MG, QID
     Route: 048

REACTIONS (5)
  - Abdominal pain upper [Unknown]
  - Drug ineffective [Unknown]
  - Drug effect decreased [Unknown]
  - Therapeutic response delayed [Unknown]
  - Constipation [Unknown]
